FAERS Safety Report 9645950 (Version 3)
Quarter: 2014Q1

REPORT INFORMATION
  Report Type: Spontaneous
  Country: AU (occurrence: AU)
  Receive Date: 20131025
  Receipt Date: 20140218
  Transmission Date: 20141002
  Serious: Yes (Death)
  Sender: FDA-Public Use
  Company Number: AU-ROCHE-1292494

PATIENT
  Age: 63 Year
  Sex: Male
  Weight: 83 kg

DRUGS (6)
  1. FILGRASTIM [Suspect]
     Indication: PRODUCT USED FOR UNKNOWN INDICATION
     Dosage: LAST DOSE PRIOR TO SAE: 26/SEP/2013
     Route: 058
     Dates: start: 20130923, end: 20130926
  2. GANCICLOVIR [Suspect]
     Indication: PRODUCT USED FOR UNKNOWN INDICATION
     Route: 042
     Dates: start: 20130925
  3. ANIDULAFUNGIN [Suspect]
     Indication: PRODUCT USED FOR UNKNOWN INDICATION
     Dosage: ONE TIME DOSE
     Route: 042
     Dates: start: 20130925
  4. NORADRENALINE [Suspect]
     Indication: PRODUCT USED FOR UNKNOWN INDICATION
     Route: 042
     Dates: start: 20130923
  5. TAZOBACTAM/PIPERACILLIN [Suspect]
     Indication: PRODUCT USED FOR UNKNOWN INDICATION
     Route: 042
     Dates: start: 20130914
  6. TEICOPLANIN [Suspect]
     Indication: PRODUCT USED FOR UNKNOWN INDICATION
     Route: 042
     Dates: start: 20130925

REACTIONS (3)
  - Renal failure acute [Fatal]
  - Blood creatinine increased [Fatal]
  - Blood urea increased [Fatal]
